FAERS Safety Report 10912903 (Version 1)
Quarter: 2015Q1

REPORT INFORMATION
  Report Type: Spontaneous
  Country: US (occurrence: None)
  Receive Date: 20150310
  Receipt Date: 20150310
  Transmission Date: 20150721
  Serious: Yes (Disabling)
  Sender: FDA-Public Use
  Company Number: None

PATIENT
  Age: 64 Year
  Sex: Female
  Weight: 74.84 kg

DRUGS (16)
  1. DULOXETINE 60MG TEVA [Suspect]
     Active Substance: DULOXETINE
     Indication: PAIN
     Dosage: 1
  2. DULOXETINE 60MG TEVA [Suspect]
     Active Substance: DULOXETINE
     Indication: NEURALGIA
     Dosage: 1
  3. PRAVASTATIN [Concomitant]
     Active Substance: PRAVASTATIN\PRAVASTATIN SODIUM
  4. OMEGA III OIL [Concomitant]
  5. DULOXETINE 60MG TEVA [Suspect]
     Active Substance: DULOXETINE
     Indication: ARTHRALGIA
     Dosage: 1
  6. VITAMIN B12 [Concomitant]
     Active Substance: CYANOCOBALAMIN
  7. DULOXETINE 60MG TEVA [Suspect]
     Active Substance: DULOXETINE
     Indication: ANXIETY
     Dosage: 1
  8. VIVELLE DOT ESTROGEN PATCH [Concomitant]
  9. GLUCOSAMINE SULFATE [Concomitant]
     Active Substance: GLUCOSAMINE SULFATE
  10. DULOXETINE 60MG TEVA [Suspect]
     Active Substance: DULOXETINE
     Indication: ANTIDEPRESSANT THERAPY
     Dosage: 1
  11. PROBIOTICS [Concomitant]
     Active Substance: PROBIOTICS NOS
  12. DIGESTIVE ENZYMES [Concomitant]
     Active Substance: UNSPECIFIED INGREDIENT
  13. CPAP [Concomitant]
     Active Substance: DEVICE
  14. VITAMIN B COMPLEX [Concomitant]
     Active Substance: CYANOCOBALAMIN\DEXPANTHENOL\NIACINAMIDE\PYRIDOXINE HYDROCHLORIDE\RIBOFLAVIN 5^-PHOSPHATE SODIUM\THIAMINE HYDROCHLORIDE\VITAMIN B COMPLEX
  15. GINGKO BILOBA [Concomitant]
  16. COLLAGEN [Concomitant]
     Active Substance: COLLAGEN

REACTIONS (6)
  - Product substitution issue [None]
  - Depression [None]
  - Drug ineffective [None]
  - Disease recurrence [None]
  - Anxiety [None]
  - Pain [None]
